FAERS Safety Report 13297353 (Version 1)
Quarter: 2017Q1

REPORT INFORMATION
  Report Type: Spontaneous
  Country: US (occurrence: US)
  Receive Date: 20170303
  Receipt Date: 20170303
  Transmission Date: 20170428
  Serious: No
  Sender: FDA-Public Use
  Company Number: None

PATIENT
  Age: 53 Year
  Sex: Male

DRUGS (1)
  1. SUTENT [Suspect]
     Active Substance: SUNITINIB MALATE
     Indication: RENAL CANCER
     Dosage: 50MG ONCE A DAY FOR 14 DAYS OFF 7 DAYS?ORALLY
     Route: 048
     Dates: start: 20160901

REACTIONS (1)
  - Hypertension [None]

NARRATIVE: CASE EVENT DATE: 20170227
